FAERS Safety Report 14454232 (Version 2)
Quarter: 2018Q1

REPORT INFORMATION
  Report Type: Report from Study
  Country: CA (occurrence: CA)
  Receive Date: 20180129
  Receipt Date: 20180202
  Transmission Date: 20180509
  Serious: Yes (Hospitalization)
  Sender: FDA-Public Use
  Company Number: PHHY2018CA006608

PATIENT
  Age: 46 Year
  Sex: Male

DRUGS (3)
  1. PNEUMOVAX 23 [Concomitant]
     Active Substance: PNEUMOCOCCAL VACCINE, POLYVALENT 23
     Indication: PRODUCT USED FOR UNKNOWN INDICATION
     Route: 065
  2. EXJADE [Suspect]
     Active Substance: DEFERASIROX
     Indication: IRON OVERLOAD
     Dosage: 1000 MG, QD
     Route: 048
  3. JADENU [Suspect]
     Active Substance: DEFERASIROX
     Indication: IRON OVERLOAD
     Dosage: UNK
     Route: 048

REACTIONS (18)
  - Productive cough [Unknown]
  - Ocular icterus [Unknown]
  - Abdominal discomfort [Unknown]
  - Hepatitis C [Unknown]
  - Diarrhoea [Unknown]
  - Blood urine present [Unknown]
  - Flank pain [Unknown]
  - Dyspnoea [Unknown]
  - Haemothorax [Unknown]
  - Pleural effusion [Unknown]
  - Hepatic cirrhosis [Unknown]
  - Drug level increased [Unknown]
  - Osteoporosis [Unknown]
  - Pyrexia [Unknown]
  - Hepatocellular carcinoma [Unknown]
  - Jaundice [Unknown]
  - Rash [Unknown]
  - Anxiety [Unknown]

NARRATIVE: CASE EVENT DATE: 20180115
